FAERS Safety Report 11154987 (Version 1)
Quarter: 2015Q2

REPORT INFORMATION
  Report Type: Spontaneous
  Country: GB (occurrence: None)
  Receive Date: 20150529
  Receipt Date: 20150529
  Transmission Date: 20150821
  Serious: Yes (Disabling, Other)
  Sender: FDA-Public Use
  Company Number: GB-H14001-15-00800

PATIENT
  Sex: Male

DRUGS (1)
  1. CIPROFLOXACIN MONOHYDROCHLORIDE [Suspect]
     Active Substance: CIPROFLOXACIN
     Indication: EPIDIDYMITIS

REACTIONS (4)
  - Pain in extremity [None]
  - Tenosynovitis [None]
  - Gait disturbance [None]
  - Myalgia [None]
